FAERS Safety Report 25542373 (Version 2)
Quarter: 2025Q3

REPORT INFORMATION
  Report Type: Spontaneous
  Country: JP (occurrence: JP)
  Receive Date: 20250711
  Receipt Date: 20250820
  Transmission Date: 20251020
  Serious: Yes (Hospitalization)
  Sender: ROCHE
  Company Number: JP-CHUGAI-2025020060

PATIENT
  Age: 81 Year
  Sex: Male
  Weight: 65 kg

DRUGS (18)
  1. TECENTRIQ [Suspect]
     Active Substance: ATEZOLIZUMAB
     Indication: Small cell lung cancer
     Dosage: 1200 MILLIGRAM, ONCE/3WEEKS
     Route: 042
     Dates: start: 20250311
  2. ETOPOSIDE [Suspect]
     Active Substance: ETOPOSIDE
     Indication: Small cell lung cancer
     Route: 042
     Dates: end: 20250430
  3. ETOPOSIDE [Suspect]
     Active Substance: ETOPOSIDE
     Route: 042
     Dates: end: 20250519
  4. CARBOPLATIN [Suspect]
     Active Substance: CARBOPLATIN
     Indication: Small cell lung cancer
     Route: 042
     Dates: start: 20250311, end: 20250311
  5. CARBOPLATIN [Suspect]
     Active Substance: CARBOPLATIN
     Route: 042
     Dates: start: 20250429
  6. CARBOPLATIN [Suspect]
     Active Substance: CARBOPLATIN
     Route: 042
     Dates: end: 20250519
  7. LACTULOSE [Suspect]
     Active Substance: LACTULOSE
     Indication: Product used for unknown indication
     Route: 048
  8. AMLODIPINE BESYLATE [Concomitant]
     Active Substance: AMLODIPINE BESYLATE
  9. FEBUXOSTAT [Concomitant]
     Active Substance: FEBUXOSTAT
  10. LIPITOR [Concomitant]
     Active Substance: ATORVASTATIN CALCIUM
  11. LANSOPRAZOLE [Concomitant]
     Active Substance: LANSOPRAZOLE
  12. MAGNESIUM OXIDE [Concomitant]
     Active Substance: MAGNESIUM OXIDE
  13. METHYLCOBALAMIN [Concomitant]
     Active Substance: METHYLCOBALAMIN
  14. CALONAL [Concomitant]
     Active Substance: ACETAMINOPHEN
  15. PREGABALIN [Concomitant]
     Active Substance: PREGABALIN
  16. LIMAPROST [Concomitant]
     Active Substance: LIMAPROST
  17. REBAMIPIDE [Concomitant]
     Active Substance: REBAMIPIDE
  18. BROTIZOLAM [Concomitant]
     Active Substance: BROTIZOLAM

REACTIONS (5)
  - Platelet count decreased [Recovered/Resolved]
  - Immune thrombocytopenia [Recovered/Resolved]
  - Tumour haemorrhage [Unknown]
  - Performance status decreased [Not Recovered/Not Resolved]
  - Immune system disorder [Recovered/Resolved]

NARRATIVE: CASE EVENT DATE: 20250407
